FAERS Safety Report 6193521-5 (Version None)
Quarter: 2009Q2

REPORT INFORMATION
  Report Type: 
  Country: None (occurrence: None)
  Receive Date: 20090518
  Receipt Date: 20090505
  Transmission Date: 20091009
  Serious: Yes (Hospitalization)
  Sender: FDA-Public Use
  Company Number: FR-ROCHE-631390

PATIENT
  Sex: Female

DRUGS (9)
  1. LARIAM [Suspect]
     Indication: MALARIA PROPHYLAXIS
     Route: 048
     Dates: start: 20080713, end: 20080803
  2. ZOLPIDEM TARTRATE [Concomitant]
  3. IMOVANE [Concomitant]
  4. XANAX [Concomitant]
  5. PRAZEPAM [Concomitant]
  6. RIVOTRIL [Concomitant]
  7. ROHYPNOL [Concomitant]
  8. TERCIAN [Concomitant]
  9. LAROXYL [Concomitant]

REACTIONS (4)
  - INSOMNIA [None]
  - MANIA [None]
  - NIGHTMARE [None]
  - WEIGHT DECREASED [None]
